FAERS Safety Report 14915571 (Version 2)
Quarter: 2018Q2

REPORT INFORMATION
  Report Type: Spontaneous
  Country: US (occurrence: US)
  Receive Date: 20180518
  Receipt Date: 20180629
  Transmission Date: 20180711
  Serious: Yes (Other)
  Sender: FDA-Public Use
  Company Number: US-FRESENIUS KABI-FK201805831

PATIENT
  Age: 2 Year
  Sex: Male
  Weight: 14.4 kg

DRUGS (2)
  1. ETOPOSIDE INJECTION, USP [Suspect]
     Active Substance: ETOPOSIDE
     Indication: CHEMOTHERAPY
     Route: 042
     Dates: start: 20180510, end: 20180510
  2. BENADRYL [Concomitant]
     Active Substance: DIPHENHYDRAMINE HYDROCHLORIDE
     Indication: PREMEDICATION
     Route: 065
     Dates: start: 20180510, end: 20180510

REACTIONS (8)
  - Throat tightness [Unknown]
  - Nausea [Recovered/Resolved]
  - Cough [Unknown]
  - Cyanosis [Unknown]
  - Dyspnoea [Recovered/Resolved]
  - Lip swelling [Unknown]
  - Erythema [Unknown]
  - Vomiting [Unknown]

NARRATIVE: CASE EVENT DATE: 20180510
